FAERS Safety Report 12964990 (Version 6)
Quarter: 2018Q4

REPORT INFORMATION
  Report Type: Report from Study
  Country: JP (occurrence: JP)
  Receive Date: 20161122
  Receipt Date: 20181109
  Transmission Date: 20190204
  Serious: Yes (Death, Hospitalization, Other)
  Sender: FDA-Public Use
  Company Number: JP-INCYTE CORPORATION-2016IN007393

PATIENT

DRUGS (3)
  1. JAKAVI [Suspect]
     Active Substance: RUXOLITINIB
     Indication: MYELOFIBROSIS
     Dosage: 5 MG, QD
     Route: 048
     Dates: start: 20151120, end: 20151209
  2. LASIX [Concomitant]
     Active Substance: FUROSEMIDE
     Indication: OEDEMA PERIPHERAL
     Dosage: UNK
     Route: 065
  3. JAKAVI [Suspect]
     Active Substance: RUXOLITINIB
     Dosage: 5 MG, BID
     Route: 048
     Dates: start: 20151210, end: 20160624

REACTIONS (21)
  - Leukaemia [Fatal]
  - Pain in extremity [Unknown]
  - Ocular icterus [Unknown]
  - Pneumonia aspiration [Fatal]
  - Bradycardia [Unknown]
  - General physical health deterioration [Unknown]
  - Blood pressure systolic increased [Unknown]
  - Varicella virus test positive [Unknown]
  - Haemorrhage subcutaneous [Unknown]
  - Decreased appetite [Unknown]
  - Oesophageal varices haemorrhage [Fatal]
  - Muscular weakness [Unknown]
  - Gait disturbance [Unknown]
  - Meningitis viral [Unknown]
  - Haematemesis [Fatal]
  - Herpes zoster disseminated [Recovering/Resolving]
  - Altered state of consciousness [Recovering/Resolving]
  - Blister [Unknown]
  - Oxygen saturation decreased [Fatal]
  - Asthenia [Unknown]
  - Pyrexia [Unknown]

NARRATIVE: CASE EVENT DATE: 20151127
